FAERS Safety Report 14402307 (Version 4)
Quarter: 2018Q2

REPORT INFORMATION
  Report Type: Report from Study
  Country: None (occurrence: PL)
  Receive Date: 20180117
  Receipt Date: 20180614
  Transmission Date: 20180711
  Serious: Yes (Death)
  Sender: FDA-Public Use
  Company Number: PL-BAUSCH-BL-2018-000736

PATIENT
  Age: 11 Year
  Sex: Male

DRUGS (7)
  1. ENDOXAN [Suspect]
     Active Substance: CYCLOPHOSPHAMIDE
     Indication: ACUTE LYMPHOCYTIC LEUKAEMIA
     Dosage: RE-INDUCTION REGIMEN
     Route: 065
  2. ARABINOSIDE CYTOSINE [Suspect]
     Active Substance: CYTARABINE
     Indication: ACUTE LYMPHOCYTIC LEUKAEMIA
     Dosage: RE-INDUCTION REGIMEN
     Route: 065
  3. L-ASPARAGINASE [Suspect]
     Active Substance: ASPARAGINASE
     Indication: ACUTE LYMPHOCYTIC LEUKAEMIA
     Dosage: RE-INDUCTION REGIMEN
     Route: 065
  4. DEXAMETHASONE. [Suspect]
     Active Substance: DEXAMETHASONE
     Indication: ACUTE LYMPHOCYTIC LEUKAEMIA
     Dosage: RE-INDUCTION REGIMEN
     Route: 065
  5. DOXORUBICINE [Suspect]
     Active Substance: DOXORUBICIN
     Indication: ACUTE LYMPHOCYTIC LEUKAEMIA
     Dosage: RE-INDUCTION REGIMEN
     Route: 065
  6. VINCRISTINE [Suspect]
     Active Substance: VINCRISTINE
     Indication: ACUTE LYMPHOCYTIC LEUKAEMIA
     Dosage: RE-INDUCTION REGIMEN
     Route: 065
  7. THIOGUANINE [Suspect]
     Active Substance: THIOGUANINE
     Indication: ACUTE LYMPHOCYTIC LEUKAEMIA
     Dosage: RE-INDUCTION REGIMEN
     Route: 065

REACTIONS (2)
  - Respiratory failure [Fatal]
  - Seizure [Fatal]
